FAERS Safety Report 22534579 (Version 1)
Quarter: 2023Q2

REPORT INFORMATION
  Report Type: Spontaneous
  Country: US (occurrence: US)
  Receive Date: 20230608
  Receipt Date: 20230608
  Transmission Date: 20230721
  Serious: Yes (Hospitalization)
  Sender: FDA-Public Use
  Company Number: US-STRIDES ARCOLAB LIMITED-2023SP002421

PATIENT
  Age: 53 Year
  Sex: Male

DRUGS (3)
  1. CALCITONIN [Suspect]
     Active Substance: CALCITONIN
     Indication: Blood calcium increased
     Dosage: 100 UNITS, BID
     Route: 065
  2. CINACALCET [Suspect]
     Active Substance: CINACALCET
     Indication: Blood calcium increased
     Dosage: 30 MILLIGRAM, UNKNOWN
     Route: 065
  3. ZOLEDRONIC ACID [Suspect]
     Active Substance: ZOLEDRONIC ACID
     Indication: Blood calcium increased
     Dosage: 4 MILLIGRAM, SINGLE (ONE-TIME DOSE)
     Route: 065

REACTIONS (1)
  - Hypocalcaemia [Not Recovered/Not Resolved]
